FAERS Safety Report 6271449-X (Version None)
Quarter: 2009Q3

REPORT INFORMATION
  Report Type: 
  Country: None (occurrence: None)
  Receive Date: 20090717
  Receipt Date: 20090706
  Transmission Date: 20100115
  Serious: Yes (Other)
  Sender: FDA-Public Use
  Company Number: PHHY2009JP26934

PATIENT
  Age: 70 Year
  Sex: Female

DRUGS (2)
  1. FEMARA [Suspect]
     Indication: BREAST CANCER
  2. ARIMIDEX [Concomitant]
     Indication: BREAST CANCER

REACTIONS (5)
  - LIVER DISORDER [None]
  - LUNG ADENOCARCINOMA [None]
  - LUNG LOBECTOMY [None]
  - METASTASES TO LYMPH NODES [None]
  - METASTASES TO TRACHEA [None]
